FAERS Safety Report 7047541-9 (Version None)
Quarter: 2010Q4

REPORT INFORMATION
  Report Type: 
  Country: None (occurrence: None)
  Receive Date: 20101015
  Receipt Date: 20101008
  Transmission Date: 20110411
  Serious: Yes (Hospitalization)
  Sender: FDA-Public Use
  Company Number: FR-PFIZER INC-2010127911

PATIENT
  Age: 58 Year
  Sex: Female

DRUGS (3)
  1. SOLU-MEDROL [Suspect]
     Dosage: 500 MG, 1X/DAY
     Route: 040
     Dates: start: 20100811, end: 20100814
  2. PROFENID [Suspect]
     Dosage: 100 MG, DAILY DOSE
     Route: 042
     Dates: start: 20100810, end: 20100811
  3. EFFERALGAN CODEINE [Suspect]
     Dosage: 2 DF, 3X/DAY
     Route: 048
     Dates: start: 20100810

REACTIONS (1)
  - MIXED LIVER INJURY [None]
